FAERS Safety Report 4884078-7 (Version None)
Quarter: 2006Q1

REPORT INFORMATION
  Report Type: 
  Country: None (occurrence: None)
  Receive Date: 20060117
  Receipt Date: 20051215
  Transmission Date: 20060701
  Serious: Yes (Hospitalization)
  Sender: FDA-Public Use
  Company Number: DSA_27561_2005

PATIENT
  Age: 51 Year
  Sex: Male
  Weight: 83 kg

DRUGS (13)
  1. NIFEDICAL [Suspect]
     Indication: HYPERTENSION
     Dosage: 60 MG QHS
     Dates: start: 20051104
  2. TEMOZOLOMIDE [Suspect]
     Indication: NEUROENDOCRINE TUMOUR
     Dosage: 150 MG Q DAY PO
     Route: 048
     Dates: start: 20050316, end: 20051004
  3. AVASTIN [Suspect]
     Indication: NEUROENDOCRINE TUMOUR
     Dosage: 5 MG/KG Q2 WK IV
     Route: 042
     Dates: start: 20050316, end: 20051012
  4. ACYCLOVIR [Concomitant]
  5. BACTRIM DS [Concomitant]
  6. AMBIEN [Concomitant]
  7. ATARAX [Concomitant]
  8. ATIVAN [Concomitant]
  9. COMPAZINE [Concomitant]
  10. GLUCOPHAGE [Concomitant]
  11. PROTONIX [Concomitant]
  12. VIAGRA [Concomitant]
  13. LISINOPRIL [Concomitant]

REACTIONS (20)
  - BAND NEUTROPHIL COUNT INCREASED [None]
  - BLOOD CHLORIDE INCREASED [None]
  - BLOOD CREATINE INCREASED [None]
  - BLOOD GLUCOSE INCREASED [None]
  - DRUG INEFFECTIVE [None]
  - EOSINOPHIL COUNT INCREASED [None]
  - HEADACHE [None]
  - HYPERTENSION [None]
  - LYMPHOPENIA [None]
  - MEAN CELL HAEMOGLOBIN INCREASED [None]
  - MEAN CELL VOLUME INCREASED [None]
  - MIGRAINE [None]
  - MONOCYTE COUNT INCREASED [None]
  - NEUTROPENIA [None]
  - PLATELET COUNT DECREASED [None]
  - PROTEINURIA [None]
  - RED BLOOD CELL COUNT DECREASED [None]
  - RED BLOOD CELLS URINE POSITIVE [None]
  - SINUSITIS [None]
  - WHITE BLOOD CELL COUNT DECREASED [None]
